FAERS Safety Report 9557554 (Version 3)
Quarter: 2018Q3

REPORT INFORMATION
  Report Type: Spontaneous
  Country: US (occurrence: US)
  Receive Date: 20130926
  Receipt Date: 20180802
  Transmission Date: 20181010
  Serious: Yes (Congenital Anomaly, Other)
  Sender: FDA-Public Use
  Company Number: US-JNJFOC-20130909970

PATIENT
  Age: 0 Year
  Sex: Male
  Weight: 3.49 kg

DRUGS (5)
  1. TRUVADA [Suspect]
     Active Substance: EMTRICITABINE\TENOFOVIR DISOPROXIL FUMARATE
     Indication: HIV INFECTION
     Dosage: MOTHER^S DOSING
     Route: 064
     Dates: start: 20111018
  2. NORVIR [Suspect]
     Active Substance: RITONAVIR
     Indication: HIV INFECTION
     Dosage: MOTHER^S DOSING
     Route: 064
     Dates: start: 20111018
  3. RETROVIR [Suspect]
     Active Substance: ZIDOVUDINE
     Indication: HIV INFECTION
     Dosage: MOTHER^S DOSING
     Route: 064
     Dates: start: 20111026
  4. PREZISTA [Suspect]
     Active Substance: DARUNAVIR ETHANOLATE
     Indication: HIV INFECTION
     Dosage: MOTHER^S DOSING
     Route: 064
     Dates: start: 20111018
  5. ISENTRESS [Suspect]
     Active Substance: RALTEGRAVIR POTASSIUM
     Indication: HIV INFECTION
     Dosage: MOTHER^S DOSING
     Route: 064
     Dates: start: 20111018

REACTIONS (2)
  - Foetal exposure during pregnancy [Recovered/Resolved]
  - Congenital mitral valve incompetence [Unknown]

NARRATIVE: CASE EVENT DATE: 20111018
